FAERS Safety Report 8377876-9 (Version None)
Quarter: 2012Q2

REPORT INFORMATION
  Report Type: 
  Country: None (occurrence: None)
  Receive Date: 20120522
  Receipt Date: 20120518
  Transmission Date: 20120825
  Serious: Yes (Death, Disabling)
  Sender: FDA-Public Use
  Company Number: US-PFIZER INC-2012086783

PATIENT
  Sex: Female

DRUGS (1)
  1. SUTENT [Suspect]
     Dosage: UNK
     Route: 048

REACTIONS (7)
  - DEATH [None]
  - HAEMOGLOBIN DECREASED [None]
  - DYSSTASIA [None]
  - PLATELET COUNT DECREASED [None]
  - ASTHENIA [None]
  - TREMOR [None]
  - WHITE BLOOD CELL COUNT DECREASED [None]
